FAERS Safety Report 17352402 (Version 1)
Quarter: 2020Q1

REPORT INFORMATION
  Report Type: Report from Study
  Country: CA (occurrence: CA)
  Receive Date: 20200130
  Receipt Date: 20200130
  Transmission Date: 20200409
  Serious: Yes (Other)
  Sender: FDA-Public Use
  Company Number: CA-NALPROPION PHARMACEUTICALS INC.-2020-009520

PATIENT

DRUGS (4)
  1. CONTRAVE [Suspect]
     Active Substance: BUPROPION HYDROCHLORIDE\NALTREXONE HYDROCHLORIDE
     Dosage: STARTED APPROXIMATELY ON 02/JAN/2020,
     Route: 048
     Dates: start: 202001, end: 20200108
  2. CONTRAVE [Suspect]
     Active Substance: BUPROPION HYDROCHLORIDE\NALTREXONE HYDROCHLORIDE
     Indication: WEIGHT CONTROL
     Dosage: STARTED APPROXIMATELY ON 15/DEC/2019, STOPPED APPROXIMATELY ON 25/DEC/2019
     Route: 048
     Dates: start: 201912, end: 201912
  3. CONTRAVE [Suspect]
     Active Substance: BUPROPION HYDROCHLORIDE\NALTREXONE HYDROCHLORIDE
     Dosage: STARTED APPROXIMATELY ON 26/DEC/2019, STOPPED APPROXIMATELY ON 01/JAN/2020
     Route: 048
     Dates: start: 201912
  4. CONTRAVE [Suspect]
     Active Substance: BUPROPION HYDROCHLORIDE\NALTREXONE HYDROCHLORIDE
     Dosage: 4 DOSAGE FORMS
     Route: 048
     Dates: start: 20200109

REACTIONS (3)
  - Rotator cuff syndrome [Not Recovered/Not Resolved]
  - Therapeutic response unexpected [Unknown]
  - Drug titration error [Unknown]

NARRATIVE: CASE EVENT DATE: 201912
